FAERS Safety Report 14770095 (Version 1)
Quarter: 2018Q2

REPORT INFORMATION
  Report Type: Spontaneous
  Country: ES (occurrence: ES)
  Receive Date: 20180417
  Receipt Date: 20180417
  Transmission Date: 20180711
  Serious: Yes (Other)
  Sender: FDA-Public Use
  Company Number: ES-TEVA-2018-ES-881715

PATIENT
  Age: 68 Year
  Sex: Female

DRUGS (1)
  1. ENALAPRIL (2142A) [Suspect]
     Active Substance: ENALAPRIL
     Route: 048

REACTIONS (2)
  - Documented hypersensitivity to administered product [Recovered/Resolved]
  - Angioedema [Unknown]
